FAERS Safety Report 8258755-4 (Version None)
Quarter: 2012Q2

REPORT INFORMATION
  Report Type: 
  Country: None (occurrence: None)
  Receive Date: 20120404
  Receipt Date: 20120404
  Transmission Date: 20120825
  Serious: Yes (Life-Threatening)
  Sender: FDA-Public Use
  Company Number: None

PATIENT
  Age: 5 Year
  Sex: Male
  Weight: 24 kg

DRUGS (1)
  1. SINGULAIR [Suspect]
     Indication: MULTIPLE ALLERGIES
     Dosage: 4MG
     Route: 004
     Dates: start: 20120315, end: 20120402

REACTIONS (4)
  - AGGRESSION [None]
  - ABNORMAL DREAMS [None]
  - SUICIDAL IDEATION [None]
  - HALLUCINATION [None]
